FAERS Safety Report 7974043-5 (Version None)
Quarter: 2011Q4

REPORT INFORMATION
  Report Type: 
  Country: None (occurrence: None)
  Receive Date: 20111213
  Receipt Date: 20111205
  Transmission Date: 20120403
  Serious: Yes (Hospitalization)
  Sender: FDA-Public Use
  Company Number: JP-GLAXOSMITHKLINE-B0767964A

PATIENT
  Age: 82 Year
  Sex: Male

DRUGS (4)
  1. MADOPAR [Concomitant]
     Indication: PARKINSON'S DISEASE
     Dosage: 3IUAX PER DAY
     Route: 048
  2. SYMMETREL [Concomitant]
     Indication: PARKINSON'S DISEASE
     Dosage: 100MG PER DAY
     Route: 048
  3. REQUIP [Suspect]
     Indication: PARKINSON'S DISEASE
     Dosage: 1.5MG PER DAY
     Route: 048
  4. RADICUT [Concomitant]
     Indication: CEREBRAL INFARCTION

REACTIONS (2)
  - FALL [None]
  - LOSS OF CONSCIOUSNESS [None]
